FAERS Safety Report 24915112 (Version 1)
Quarter: 2025Q1

REPORT INFORMATION
  Report Type: Other
  Country: US (occurrence: US)
  Receive Date: 20250203
  Receipt Date: 20250203
  Transmission Date: 20250409
  Serious: Yes (Hospitalization)
  Sender: ANI
  Company Number: US-ANIPHARMA-015544

PATIENT
  Age: 60 Year
  Sex: Male

DRUGS (7)
  1. LORAZEPAM [Suspect]
     Active Substance: LORAZEPAM
     Indication: Major depression
  2. FLUOXETINE [Suspect]
     Active Substance: FLUOXETINE HYDROCHLORIDE
     Indication: Major depression
  3. MIRTAZAPINE [Concomitant]
     Active Substance: MIRTAZAPINE
     Indication: Major depression
  4. ESCITALOPRAM [Concomitant]
     Active Substance: ESCITALOPRAM OXALATE
     Indication: Major depression
  5. OLANZAPINE [Concomitant]
     Active Substance: OLANZAPINE
     Indication: Major depression
  6. LORAZEPAM [Suspect]
     Active Substance: LORAZEPAM
     Indication: Major depression
  7. LORAZEPAM [Suspect]
     Active Substance: LORAZEPAM
     Indication: Major depression

REACTIONS (2)
  - Drug ineffective [Unknown]
  - Rebound effect [Unknown]
